FAERS Safety Report 13436242 (Version 1)
Quarter: 2017Q2

REPORT INFORMATION
  Report Type: Spontaneous
  Country: US (occurrence: US)
  Receive Date: 20170412
  Receipt Date: 20170412
  Transmission Date: 20170830
  Serious: Yes (Hospitalization)
  Sender: FDA-Public Use
  Company Number: None

PATIENT
  Age: 52 Year
  Sex: Female
  Weight: 76.4 kg

DRUGS (14)
  1. CALCIUM-CITRATE-VITAMIN D3 [Concomitant]
  2. HYDROMORPHONE [Concomitant]
     Active Substance: HYDROMORPHONE
  3. MAGNESIUM SULFATE. [Concomitant]
     Active Substance: MAGNESIUM SULFATE
  4. POTASSIUM [Concomitant]
     Active Substance: POTASSIUM
  5. SODIUM CHLORIDE. [Concomitant]
     Active Substance: SODIUM CHLORIDE
  6. DEXTROSE. [Concomitant]
     Active Substance: DEXTROSE
  7. SODIUM PHOSPHATES [Concomitant]
     Active Substance: SODIUM PHOSPHATE, DIBASIC, ANHYDROUS\SODIUM PHOSPHATE, DIBASIC, HEPTAHYDRATE\SODIUM PHOSPHATE, MONOBASIC, MONOHYDRATE
  8. FENOLDOPAM [Concomitant]
     Active Substance: FENOLDOPAM
  9. MAGNESIUM OXIDE. [Concomitant]
     Active Substance: MAGNESIUM OXIDE
  10. POTASSIUM CHLORIDE. [Concomitant]
     Active Substance: POTASSIUM CHLORIDE
  11. CALCIUM GLUCONATE. [Concomitant]
     Active Substance: CALCIUM GLUCONATE
  12. OXYCODONE [Concomitant]
     Active Substance: OXYCODONE
  13. NICARDIPINE [Concomitant]
     Active Substance: NICARDIPINE
  14. ESMOLOL 2,000MG/100ML INFUSION [Suspect]
     Active Substance: ESMOLOL HYDROCHLORIDE
     Indication: AORTIC DISSECTION
     Dosage: 300MCG/KG/MIN CONTINUOUS IV INFUSION
     Route: 042
     Dates: start: 20170225, end: 20170226

REACTIONS (5)
  - Peripheral swelling [None]
  - Blister [None]
  - Injection site induration [None]
  - Pruritus [None]
  - Infusion site extravasation [None]

NARRATIVE: CASE EVENT DATE: 20170226
